FAERS Safety Report 6275231-9 (Version None)
Quarter: 2009Q3

REPORT INFORMATION
  Report Type: 
  Country: None (occurrence: None)
  Receive Date: 20090721
  Receipt Date: 20090709
  Transmission Date: 20100115
  Serious: Yes (Death, Other)
  Sender: FDA-Public Use
  Company Number: CR-WYE-H10173309

PATIENT
  Sex: Male

DRUGS (1)
  1. PANTECTA [Suspect]
     Dosage: 20 MG, UNKNOWN DAILY DOSE
     Route: 048

REACTIONS (2)
  - DEATH [None]
  - GASTRIC CANCER [None]
